FAERS Safety Report 16648096 (Version 1)
Quarter: 2019Q3

REPORT INFORMATION
  Report Type: Spontaneous
  Country: FR (occurrence: FR)
  Receive Date: 20190730
  Receipt Date: 20190730
  Transmission Date: 20191004
  Serious: Yes (Hospitalization)
  Sender: FDA-Public Use
  Company Number: FR-MYLANLABS-2019M1071261

PATIENT
  Age: 33 Year
  Sex: Male
  Weight: 90 kg

DRUGS (11)
  1. ALFUZOSINE                         /00975302/ [Concomitant]
     Active Substance: ALFUZOSIN HYDROCHLORIDE
     Dosage: UNK
  2. IMIPENEM AND CILASTATIN [Suspect]
     Active Substance: CILASTATIN SODIUM\IMIPENEM
     Indication: FEBRILE BONE MARROW APLASIA
     Dosage: 4 GRAM, QD
     Route: 041
     Dates: start: 20180928, end: 20181004
  3. METHOTREXATE. [Suspect]
     Active Substance: METHOTREXATE
     Indication: ACUTE MYELOID LEUKAEMIA
     Dosage: 0.15 MILLIGRAM, TOTAL
     Route: 037
     Dates: start: 20180927, end: 20180927
  4. NEFOPAM                            /00396102/ [Concomitant]
     Active Substance: NEFOPAM HYDROCHLORIDE
     Dosage: UNK
  5. OXYBUTININ ACCORD [Concomitant]
     Dosage: UNK
  6. TRAMADOL                           /00599202/ [Concomitant]
     Active Substance: TRAMADOL
     Dosage: UNK
  7. POSACONAZOLE [Concomitant]
     Active Substance: POSACONAZOLE
     Dosage: UNK
  8. RACECADOTRIL [Concomitant]
     Active Substance: RACECADOTRIL
     Dosage: UNK
  9. VANCOMYCINE SANDOZ [Suspect]
     Active Substance: VANCOMYCIN
     Indication: FEBRILE BONE MARROW APLASIA
     Dosage: 3000 MILLIGRAM
     Route: 041
     Dates: start: 20180928, end: 20181008
  10. GRANOCYTE [Suspect]
     Active Substance: LENOGRASTIM
     Indication: ACUTE MYELOID LEUKAEMIA
     Dosage: 33.6 MEGA-INTERNATIONAL UNIT, TOTAL
     Route: 041
     Dates: start: 20180929, end: 20181008
  11. PARACETAMOL [Concomitant]
     Active Substance: ACETAMINOPHEN
     Dosage: UNK

REACTIONS (3)
  - Loss of consciousness [Recovered/Resolved]
  - Aphasia [Recovered/Resolved]
  - Confusional state [Recovered/Resolved]

NARRATIVE: CASE EVENT DATE: 20181004
